FAERS Safety Report 23670523 (Version 1)
Quarter: 2024Q1

REPORT INFORMATION
  Report Type: Spontaneous
  Country: CA (occurrence: CA)
  Receive Date: 20240326
  Receipt Date: 20240326
  Transmission Date: 20240409
  Serious: Yes (Other)
  Sender: FDA-Public Use
  Company Number: CA-TAKEDA-2024TUS025834

PATIENT
  Age: 49 Year
  Sex: Female

DRUGS (1)
  1. HUMAN IMMUNOGLOBULIN G [Suspect]
     Active Substance: HUMAN IMMUNOGLOBULIN G
     Indication: Secondary immunodeficiency
     Dosage: 30 GRAM
     Route: 065

REACTIONS (15)
  - Gastrointestinal disorder [Unknown]
  - Shock [Unknown]
  - Fall [Unknown]
  - Febrile nonhaemolytic transfusion reaction [Unknown]
  - Infertility [Unknown]
  - Diffuse large B-cell lymphoma [Unknown]
  - Rhinovirus infection [Unknown]
  - Vascular device infection [Unknown]
  - Haemoglobin decreased [Unknown]
  - Blood bilirubin decreased [Unknown]
  - Hyperhidrosis [Unknown]
  - Cold sweat [Unknown]
  - Chills [Unknown]
  - Dizziness [Unknown]
  - Off label use [Unknown]

NARRATIVE: CASE EVENT DATE: 20230623
